FAERS Safety Report 4695700-2 (Version None)
Quarter: 2005Q2

REPORT INFORMATION
  Report Type: 
  Country: None (occurrence: None)
  Receive Date: 20050621
  Receipt Date: 20050607
  Transmission Date: 20051028
  Serious: Yes (Hospitalization, Other)
  Sender: FDA-Public Use
  Company Number: GB-JNJFOC-20050601918

PATIENT
  Sex: Female
  Weight: 55 kg

DRUGS (7)
  1. REMICADE [Suspect]
     Route: 042
  2. METHOTREXATE [Concomitant]
  3. FOLIC ACID [Concomitant]
  4. PREDNISOLONE [Concomitant]
  5. ZANTAC [Concomitant]
  6. CO-PROXAMOL [Concomitant]
  7. CO-PROXAMOL [Concomitant]

REACTIONS (1)
  - OVARIAN CANCER [None]
